FAERS Safety Report 9999747 (Version 3)
Quarter: 2014Q2

REPORT INFORMATION
  Report Type: Spontaneous
  Country: IT (occurrence: IT)
  Receive Date: 20140312
  Receipt Date: 20140415
  Transmission Date: 20141212
  Serious: Yes (Other)
  Sender: FDA-Public Use
  Company Number: IT-ACTAVIS-2014-04150

PATIENT
  Age: 32 Year
  Sex: Female

DRUGS (3)
  1. TRAMADOL (UNKNOWN) [Suspect]
     Indication: BACK PAIN
     Dosage: UNK
     Route: 048
     Dates: start: 20131219, end: 20131227
  2. VOLTAREN                           /00372301/ [Suspect]
     Indication: BACK PAIN
     Dosage: UNK
     Route: 030
     Dates: start: 20131219, end: 20131227
  3. PPI                                /00661201/ [Concomitant]
     Indication: SCIATICA
     Dosage: UNK
     Route: 065

REACTIONS (1)
  - Gastritis [Recovering/Resolving]
